FAERS Safety Report 7321233-0 (Version None)
Quarter: 2011Q1

REPORT INFORMATION
  Report Type: 
  Country: None (occurrence: None)
  Receive Date: 20110228
  Receipt Date: 20110219
  Transmission Date: 20110831
  Serious: Yes (Hospitalization)
  Sender: FDA-Public Use
  Company Number: US-B.I. PHARMACEUTICALS,INC./RIDGEFIELD-2011-BP-05001BP

PATIENT
  Sex: Male

DRUGS (4)
  1. MULTAQ [Suspect]
     Dates: start: 20110209
  2. PRADAXA [Suspect]
     Indication: ATRIAL FIBRILLATION
     Dosage: 300 MG
     Route: 048
     Dates: start: 20110207
  3. LISINOPRIL [Suspect]
  4. SOTALOL HYDROCHLORIDE [Concomitant]
     Dates: start: 20110201

REACTIONS (5)
  - ARRHYTHMIA [None]
  - ABDOMINAL TENDERNESS [None]
  - DIARRHOEA [None]
  - DYSPEPSIA [None]
  - COUGH [None]
